FAERS Safety Report 9669757 (Version 1)
Quarter: 2013Q4

REPORT INFORMATION
  Report Type: Spontaneous
  Country: US (occurrence: US)
  Receive Date: 20131105
  Receipt Date: 20131105
  Transmission Date: 20140711
  Serious: Yes (Hospitalization)
  Sender: FDA-Public Use
  Company Number: US-BAYER-2013-132642

PATIENT
  Age: 44 Year
  Sex: Female

DRUGS (10)
  1. YASMIN [Suspect]
  2. HYDROCODONE [Concomitant]
  3. AMOXICILLIN [Concomitant]
  4. GUAIFENESIN W/PHENYLEPHRINE [Concomitant]
  5. PROAIR HFA [Concomitant]
  6. FLUTICASONE [Concomitant]
  7. PSEUDOEPHEDRINE [Concomitant]
  8. SUDAFED [Concomitant]
  9. FLONASE [Concomitant]
  10. MICROGESTIN FE [Concomitant]

REACTIONS (1)
  - Pulmonary embolism [None]
